FAERS Safety Report 4914231-5 (Version None)
Quarter: 2006Q1

REPORT INFORMATION
  Report Type: 
  Country: None (occurrence: None)
  Receive Date: 20060213
  Receipt Date: 20060203
  Transmission Date: 20060701
  Serious: Yes (Disabling)
  Sender: FDA-Public Use
  Company Number: 2005-09-1524

PATIENT
  Age: 57 Year
  Sex: Female

DRUGS (2)
  1. NASONEX [Suspect]
     Indication: RHINITIS ALLERGIC
     Dosage: SEE IMAGE
     Route: 045
     Dates: start: 20050501, end: 20050501
  2. NASONEX [Suspect]
     Indication: RHINITIS ALLERGIC
     Dosage: SEE IMAGE
     Route: 045
     Dates: start: 20050601, end: 20050601

REACTIONS (3)
  - DRUG PRESCRIBING ERROR [None]
  - DYSPHONIA [None]
  - PHARYNGOLARYNGEAL PAIN [None]
